FAERS Safety Report 8176779-2 (Version None)
Quarter: 2012Q1

REPORT INFORMATION
  Report Type: 
  Country: None (occurrence: None)
  Receive Date: 20120301
  Receipt Date: 20120216
  Transmission Date: 20120608
  Serious: Yes (Hospitalization, Congenital Anomaly, Other)
  Sender: FDA-Public Use
  Company Number: DE-MYLANLABS-2012S1003479

PATIENT
  Age: 0 Year
  Sex: Female
  Weight: 0.86 kg

DRUGS (5)
  1. FEMIBION [Concomitant]
     Dosage: 0-27.5 GW
     Route: 064
  2. REMICADE [Suspect]
     Dosage: 300 [MG/EVERY 8 WKS ]
     Route: 064
  3. PREDNISOLONE [Suspect]
     Dosage: 15 [MG/D ]
     Route: 064
  4. AZATHIOPRINE [Suspect]
     Dosage: 150 [MG/D ]/ WEEK 0-4.3 AND 18-27.5
     Route: 064
     Dates: start: 20080726
  5. METHYLPREDNISOLONE [Suspect]
     Route: 064
     Dates: start: 20090126, end: 20090205

REACTIONS (10)
  - ATRIAL SEPTAL DEFECT [None]
  - HAEMANGIOMA [None]
  - INGUINAL HERNIA [None]
  - BRADYCARDIA NEONATAL [None]
  - MATERNAL EXPOSURE DURING PREGNANCY [None]
  - HYPERBILIRUBINAEMIA [None]
  - PREMATURE BABY [None]
  - ANAEMIA NEONATAL [None]
  - NEONATAL RESPIRATORY DISTRESS SYNDROME [None]
  - NEONATAL HYPONATRAEMIA [None]
